FAERS Safety Report 13856088 (Version 2)
Quarter: 2017Q3

REPORT INFORMATION
  Report Type: Spontaneous
  Country: US (occurrence: US)
  Receive Date: 20170810
  Receipt Date: 20170825
  Transmission Date: 20171127
  Serious: Yes (Other)
  Sender: FDA-Public Use
  Company Number: US-ELI_LILLY_AND_COMPANY-US201708001465

PATIENT
  Age: 18 Year
  Sex: Male

DRUGS (7)
  1. HUMALOG [Suspect]
     Active Substance: INSULIN LISPRO
     Dosage: UNK
     Route: 065
  2. HUMALOG [Suspect]
     Active Substance: INSULIN LISPRO
     Dosage: UNK
     Route: 065
  3. HUMALOG [Suspect]
     Active Substance: INSULIN LISPRO
     Dosage: UNK, UNKNOWN
     Route: 065
  4. HUMALOG [Suspect]
     Active Substance: INSULIN LISPRO
     Indication: PRODUCT USED FOR UNKNOWN INDICATION
     Dosage: UNK, UNKNOWN
     Route: 065
     Dates: start: 2015
  5. HUMALOG [Suspect]
     Active Substance: INSULIN LISPRO
     Dosage: UNK
     Route: 065
  6. GLUCAGON. [Suspect]
     Active Substance: GLUCAGON
     Indication: BLOOD GLUCOSE DECREASED
     Dosage: UNK, UNKNOWN
     Route: 065
  7. NOVOLOG [Concomitant]
     Active Substance: INSULIN ASPART
     Dosage: UNK, UNKNOWN
     Route: 065

REACTIONS (12)
  - Blood glucose fluctuation [Unknown]
  - Blood glucose increased [Unknown]
  - Pneumonia [Unknown]
  - Lung infection [Unknown]
  - Blood glucose decreased [Unknown]
  - Underdose [Unknown]
  - Diabetes mellitus inadequate control [Unknown]
  - Wrong technique in product usage process [Unknown]
  - Blood glucose abnormal [Unknown]
  - Visual impairment [Unknown]
  - Bronchiectasis [Unknown]
  - Incorrect dose administered [Unknown]

NARRATIVE: CASE EVENT DATE: 201706
